FAERS Safety Report 9466057 (Version 2)
Quarter: 2013Q4

REPORT INFORMATION
  Report Type: Spontaneous
  Country: CA (occurrence: CA)
  Receive Date: 20130820
  Receipt Date: 20131010
  Transmission Date: 20140711
  Serious: Yes (Hospitalization, Other)
  Sender: FDA-Public Use
  Company Number: CA-SANOFI-AVENTIS-2013SA081569

PATIENT
  Age: 64 Year
  Sex: Female

DRUGS (9)
  1. FUROSEMIDE [Suspect]
     Indication: PRODUCT USED FOR UNKNOWN INDICATION
     Route: 048
     Dates: end: 20090131
  2. IRBESARTAN [Suspect]
     Indication: PRODUCT USED FOR UNKNOWN INDICATION
     Route: 048
     Dates: end: 20090131
  3. INDOMETHACIN [Suspect]
     Indication: GOUT
     Route: 048
     Dates: end: 20090131
  4. SPIRONOLACTONE [Suspect]
     Indication: PRODUCT USED FOR UNKNOWN INDICATION
     Route: 048
  5. ATORVASTATIN CALCIUM [Concomitant]
     Route: 048
  6. CLOPIDOGREL [Concomitant]
     Route: 048
  7. INSULIN [Concomitant]
     Dosage: DOSE:40 UNIT(S)
     Route: 058
  8. GLYCERYL TRINITRATE [Concomitant]
     Dosage: FORM: PATCH, 0.6 MG/HR
     Route: 061
  9. NORTRIPTYLINE [Concomitant]
     Dosage: 25 MG AM AND 50 MG PM
     Route: 048

REACTIONS (15)
  - Blood creatinine increased [Recovered/Resolved]
  - Blood glucose increased [Recovered/Resolved]
  - Chromaturia [Unknown]
  - Hypophagia [Unknown]
  - Sputum increased [Unknown]
  - Blood potassium increased [Recovered/Resolved]
  - Blood sodium decreased [Recovered/Resolved]
  - Blood urea increased [Unknown]
  - White blood cell count increased [Unknown]
  - Staphylococcus test positive [Unknown]
  - Sputum discoloured [Unknown]
  - Dizziness [Unknown]
  - Fatigue [Unknown]
  - Vertigo [Unknown]
  - Vomiting [Unknown]
